FAERS Safety Report 19206371 (Version 2)
Quarter: 2021Q2

REPORT INFORMATION
  Report Type: Spontaneous
  Country: CN (occurrence: CN)
  Receive Date: 20210503
  Receipt Date: 20210506
  Transmission Date: 20210717
  Serious: No
  Sender: FDA-Public Use
  Company Number: NVSC2021CN093974

PATIENT
  Age: 65 Year
  Sex: Male
  Weight: 48 kg

DRUGS (1)
  1. ZYKADIA [Suspect]
     Active Substance: CERITINIB
     Indication: LUNG NEOPLASM MALIGNANT
     Dosage: 450 MG, QD
     Route: 048
     Dates: start: 20210113, end: 20210412

REACTIONS (2)
  - Troponin I increased [Recovering/Resolving]
  - Cardiotoxicity [Recovering/Resolving]

NARRATIVE: CASE EVENT DATE: 20210407
